FAERS Safety Report 11617897 (Version 11)
Quarter: 2016Q1

REPORT INFORMATION
  Report Type: Spontaneous
  Country: US (occurrence: US)
  Receive Date: 20151009
  Receipt Date: 20160201
  Transmission Date: 20160525
  Serious: Yes (Other)
  Sender: FDA-Public Use
  Company Number: US-ABBVIE-15P-163-1477503-00

PATIENT
  Sex: Female

DRUGS (3)
  1. SYNTHROID [Concomitant]
     Active Substance: LEVOTHYROXINE SODIUM
     Indication: HYPOTHYROIDISM
  2. RIBAVIRIN. [Suspect]
     Active Substance: RIBAVIRIN
     Indication: HEPATITIS C
     Route: 048
  3. VIEKIRA PAK [Suspect]
     Active Substance: DASABUVIR\OMBITASVIR\PARITAPREVIR\RITONAVIR
     Indication: HEPATITIS C
     Route: 048

REACTIONS (10)
  - Systemic lupus erythematosus [Unknown]
  - Mycobacterium avium complex infection [Unknown]
  - Diabetes mellitus [Unknown]
  - Spinal disorder [Unknown]
  - Malaise [Not Recovered/Not Resolved]
  - Rheumatoid arthritis [Unknown]
  - Asthma [Unknown]
  - Neuropathy peripheral [Unknown]
  - Spinal fusion surgery [Unknown]
  - Fatigue [Unknown]
